FAERS Safety Report 21097052 (Version 1)
Quarter: 2022Q3

REPORT INFORMATION
  Report Type: Report from Study
  Country: KR (occurrence: KR)
  Receive Date: 20220719
  Receipt Date: 20220719
  Transmission Date: 20221027
  Serious: Yes (Death, Life-Threatening, Hospitalization, Other)
  Sender: FDA-Public Use
  Company Number: KR-CELGENE-KOR-20210105143

PATIENT
  Age: 67 Year
  Sex: Male

DRUGS (2)
  1. POMALYST [Suspect]
     Active Substance: POMALIDOMIDE
     Indication: Plasma cell myeloma
     Dosage: 4 MILLIGRAM
     Route: 048
     Dates: start: 20210108, end: 20210115
  2. DEXAMETHASONE [Suspect]
     Active Substance: DEXAMETHASONE
     Indication: Plasma cell myeloma
     Dosage: 40 MILLIGRAM
     Route: 065
     Dates: end: 20210115

REACTIONS (4)
  - Febrile neutropenia [Not Recovered/Not Resolved]
  - Acute kidney injury [Not Recovered/Not Resolved]
  - Septic shock [Fatal]
  - Condition aggravated [Fatal]

NARRATIVE: CASE EVENT DATE: 20210119
